FAERS Safety Report 18917329 (Version 2)
Quarter: 2021Q1

REPORT INFORMATION
  Report Type: Spontaneous
  Country: US (occurrence: US)
  Receive Date: 20210219
  Receipt Date: 20210312
  Transmission Date: 20210420
  Serious: Yes (Other)
  Sender: FDA-Public Use
  Company Number: US-GLAXOSMITHKLINE-USCH2021003529

PATIENT
  Age: 73 Year
  Sex: Male

DRUGS (1)
  1. SENSODYNE SENSITIVITY AND GUM MINT [Suspect]
     Active Substance: STANNOUS FLUORIDE
     Indication: DENTAL DISORDER PROPHYLAXIS
     Dosage: UNK

REACTIONS (4)
  - Hypoaesthesia oral [Unknown]
  - Burn oral cavity [Recovered/Resolved]
  - Aphthous ulcer [Recovered/Resolved]
  - Oral pain [Recovered/Resolved]

NARRATIVE: CASE EVENT DATE: 20210123
